FAERS Safety Report 24976358 (Version 1)
Quarter: 2025Q1

REPORT INFORMATION
  Report Type: Spontaneous
  Country: ES (occurrence: ES)
  Receive Date: 20250217
  Receipt Date: 20250217
  Transmission Date: 20250409
  Serious: Yes (Death, Hospitalization)
  Sender: ACCORD
  Company Number: None

PATIENT
  Age: 76 Year
  Sex: Female

DRUGS (3)
  1. CARBOPLATIN [Interacting]
     Active Substance: CARBOPLATIN
     Indication: Oropharyngeal cancer recurrent
     Dates: start: 20240226, end: 20240226
  2. FLUOROURACIL [Interacting]
     Active Substance: FLUOROURACIL
     Indication: Oropharyngeal cancer recurrent
     Dates: start: 20240226, end: 20240226
  3. PEMBROLIZUMAB [Interacting]
     Active Substance: PEMBROLIZUMAB
     Indication: Oropharyngeal cancer recurrent
     Dates: start: 20240305, end: 20240305

REACTIONS (4)
  - Pancytopenia [Fatal]
  - Pneumonia [Fatal]
  - Septic shock [Fatal]
  - Pseudomonal bacteraemia [Fatal]

NARRATIVE: CASE EVENT DATE: 20240311
